FAERS Safety Report 4688011-2 (Version None)
Quarter: 2005Q2

REPORT INFORMATION
  Report Type: 
  Country: None (occurrence: None)
  Receive Date: 20050610
  Receipt Date: 20050506
  Transmission Date: 20051028
  Serious: Yes (Hospitalization)
  Sender: FDA-Public Use
  Company Number: 2005UW07222

PATIENT
  Age: 63 Year
  Sex: Female
  Weight: 64.5 kg

DRUGS (12)
  1. IRESSA [Suspect]
     Dosage: HELD
     Route: 048
     Dates: start: 20030708
  2. IRESSA [Suspect]
     Route: 048
     Dates: end: 20030812
  3. LEVAQUIN [Suspect]
     Dates: start: 20050811
  4. LEVAQUIN [Suspect]
     Route: 048
     Dates: start: 20030812
  5. CHEMOTHERAPY [Concomitant]
  6. XANAX [Concomitant]
     Dosage: 1 TAB PO TID PRN
     Route: 048
  7. ADVAIR DISKUS 100/50 [Concomitant]
     Dosage: 250/50 MG
     Route: 055
  8. ALBUTEROL [Concomitant]
     Dosage: QID PRN
  9. TUSSIONEX [Concomitant]
  10. OMNICEF [Concomitant]
     Dates: end: 20050811
  11. MULTI-VITAMIN [Concomitant]
  12. ANUSOL [Concomitant]
     Route: 054

REACTIONS (41)
  - ABDOMINAL DISTENSION [None]
  - ACTIVITIES OF DAILY LIVING IMPAIRED [None]
  - ALANINE AMINOTRANSFERASE INCREASED [None]
  - ANAEMIA [None]
  - ANXIETY [None]
  - ASPARTATE AMINOTRANSFERASE INCREASED [None]
  - ASTHENIA [None]
  - CARDIAC FAILURE CONGESTIVE [None]
  - CARDIOMEGALY [None]
  - CHEST DISCOMFORT [None]
  - CHEST PAIN [None]
  - CHOLELITHIASIS [None]
  - DIARRHOEA [None]
  - DIASTOLIC DYSFUNCTION [None]
  - DIVERTICULUM [None]
  - DYSPNOEA [None]
  - DYSPNOEA EXERTIONAL [None]
  - ELECTROCARDIOGRAM ST-T SEGMENT ABNORMAL [None]
  - ELECTROCARDIOGRAM T WAVE ABNORMAL [None]
  - FATIGUE [None]
  - GALLBLADDER POLYP [None]
  - HEPATIC CYST [None]
  - HEPATIC ENZYME INCREASED [None]
  - HEPATIC LESION [None]
  - HYPERHIDROSIS [None]
  - HYPOTENSION [None]
  - INFARCTION [None]
  - IRON BINDING CAPACITY TOTAL DECREASED [None]
  - NAUSEA [None]
  - OEDEMA PERIPHERAL [None]
  - OXYGEN SATURATION DECREASED [None]
  - PALPITATIONS [None]
  - PERICARDIAL EFFUSION [None]
  - PLEURAL EFFUSION [None]
  - PRODUCTIVE COUGH [None]
  - RENAL CYST [None]
  - SINUS TACHYCARDIA [None]
  - SUPRAVENTRICULAR TACHYCARDIA [None]
  - VENTRICULAR EXTRASYSTOLES [None]
  - VOMITING [None]
  - WEIGHT INCREASED [None]
